FAERS Safety Report 7418946-9 (Version None)
Quarter: 2011Q2

REPORT INFORMATION
  Report Type: 
  Country: None (occurrence: None)
  Receive Date: 20110415
  Receipt Date: 20110404
  Transmission Date: 20111010
  Serious: Yes (Other)
  Sender: FDA-Public Use
  Company Number: US-BAYER-201040696NA

PATIENT
  Age: 27 Year
  Sex: Female
  Weight: 98 kg

DRUGS (1)
  1. OCELLA [Suspect]
     Indication: PREMENSTRUAL SYNDROME
     Dosage: UNK
     Dates: start: 20090728, end: 20091110

REACTIONS (3)
  - INJURY [None]
  - PAIN [None]
  - DEEP VEIN THROMBOSIS [None]
